FAERS Safety Report 6538884-3 (Version None)
Quarter: 2010Q1

REPORT INFORMATION
  Report Type: 
  Country: None (occurrence: None)
  Receive Date: 20100115
  Receipt Date: 20100111
  Transmission Date: 20100710
  Serious: Yes (Death, Life-Threatening, Hospitalization, Other)
  Sender: FDA-Public Use
  Company Number: AU-NOVOPROD-275333

PATIENT
  Age: 13 Year
  Sex: Male
  Weight: 37.5 kg

DRUGS (7)
  1. NORDITROPIN [Suspect]
     Indication: BODY HEIGHT BELOW NORMAL
     Dosage: 1.5 MG, QD
     Route: 058
     Dates: start: 20060223, end: 20080413
  2. AZATHIOPRINE [Concomitant]
     Dosage: 50 MG, QD
     Route: 048
     Dates: start: 20010512
  3. PREDNISOLONE [Concomitant]
     Dosage: 15 MG, QD
     Route: 048
     Dates: start: 20010512
  4. TACROLIMUS [Concomitant]
     Dosage: 12 MG, QD
     Route: 048
     Dates: start: 20010512
  5. ROACCUTANE [Concomitant]
     Dosage: 10 MG, QD
     Route: 048
     Dates: start: 20051006, end: 20080413
  6. ENAPRIL                            /00574901/ [Concomitant]
     Route: 048
     Dates: start: 20051208
  7. VALGANCICLOVIR HCL [Concomitant]
     Dosage: 450 MG, BID
     Dates: start: 20080424, end: 20080503

REACTIONS (7)
  - BACK PAIN [None]
  - EPSTEIN-BARR VIRUS ASSOCIATED LYMPHOPROLIFERATIVE DISORDER [None]
  - HAEMOGLOBIN DECREASED [None]
  - LIVER DISORDER [None]
  - RENAL IMPAIRMENT [None]
  - SEPSIS [None]
  - UPPER RESPIRATORY TRACT INFECTION [None]
